FAERS Safety Report 4523212-5 (Version None)
Quarter: 2004Q4

REPORT INFORMATION
  Report Type: 
  Country: None (occurrence: None)
  Receive Date: 20041208
  Receipt Date: 20041130
  Transmission Date: 20050328
  Serious: Yes (Death)
  Sender: FDA-Public Use
  Company Number: 2004SE06648

PATIENT
  Age: 85 Year
  Sex: Female

DRUGS (9)
  1. SEROQUEL [Suspect]
     Indication: HALLUCINATION
     Dosage: 50 MG DAILY PO
     Route: 048
     Dates: start: 20040813
  2. ZELDOX [Suspect]
     Indication: HALLUCINATION
     Dosage: 20 MG BID PO
     Route: 048
     Dates: start: 20040803, end: 20040806
  3. RENITEC [Concomitant]
  4. IMDUR [Concomitant]
  5. CALCIUM [Concomitant]
  6. TRIOBE [Concomitant]
  7. FOSAMAX [Concomitant]
  8. DIGITOXIN TAB [Concomitant]
  9. MAREVAN [Concomitant]

REACTIONS (2)
  - MYOCARDIAL INFARCTION [None]
  - SUDDEN DEATH [None]
